FAERS Safety Report 4429058-0 (Version None)
Quarter: 2004Q3

REPORT INFORMATION
  Report Type: 
  Country: None (occurrence: None)
  Receive Date: 20040818
  Receipt Date: 20040809
  Transmission Date: 20050211
  Serious: Yes (Life-Threatening, Hospitalization)
  Sender: FDA-Public Use
  Company Number: US-MERCK-0408USA00868

PATIENT
  Age: 66 Year
  Sex: Male

DRUGS (9)
  1. ALPHAGAN [Concomitant]
     Route: 065
  2. LOTEMAX [Concomitant]
     Route: 065
  3. PILOCARPINE [Concomitant]
     Route: 065
  4. TIMOPTIC-XE [Suspect]
     Indication: OPEN ANGLE GLAUCOMA
     Route: 047
     Dates: start: 20000101
  5. TIMOPTIC-XE [Suspect]
     Route: 047
     Dates: end: 20020701
  6. TIMOPTIC-XE [Suspect]
     Indication: INTRAOCULAR PRESSURE TEST
     Route: 047
     Dates: start: 20000101
  7. TIMOPTIC-XE [Suspect]
     Route: 047
     Dates: end: 20020701
  8. DIAMOX [Concomitant]
     Route: 048
  9. LUMIGAN [Concomitant]
     Route: 065

REACTIONS (5)
  - BRADYCARDIA [None]
  - NECK PAIN [None]
  - PAIN IN EXTREMITY [None]
  - SINUSITIS [None]
  - VERTIGO [None]
